FAERS Safety Report 5254338-9 (Version None)
Quarter: 2007Q1

REPORT INFORMATION
  Report Type: 
  Country: None (occurrence: None)
  Receive Date: 20070302
  Receipt Date: 20070218
  Transmission Date: 20070707
  Serious: Yes (Hospitalization)
  Sender: FDA-Public Use
  Company Number: HQWYE154120FEB07

PATIENT
  Age: 19 Year
  Sex: Female

DRUGS (4)
  1. ENBREL [Suspect]
     Indication: JUVENILE ARTHRITIS
     Route: 058
     Dates: start: 20050501
  2. PLAQUENIL [Concomitant]
  3. NSAID'S [Concomitant]
  4. METHOTREXATE [Concomitant]

REACTIONS (4)
  - ACUTE POLYNEUROPATHY [None]
  - DEMYELINATION [None]
  - FACIAL PALSY [None]
  - GUILLAIN-BARRE SYNDROME [None]
